FAERS Safety Report 5508796-2 (Version None)
Quarter: 2007Q4

REPORT INFORMATION
  Report Type: 
  Country: None (occurrence: None)
  Receive Date: 20071105
  Receipt Date: 20071101
  Transmission Date: 20080405
  Serious: Yes (Other)
  Sender: FDA-Public Use
  Company Number: 020250

PATIENT
  Sex: Female

DRUGS (4)
  1. MEDROXYPROGESTERONE ACETATE [Suspect]
     Dosage: ORAL
     Route: 048
     Dates: start: 19960101, end: 19961101
  2. CYCRIN [Suspect]
     Dosage: ORAL
     Route: 048
     Dates: start: 19760101, end: 19961101
  3. PREMARIN [Suspect]
     Dosage: ORAL
     Route: 048
     Dates: start: 19760101, end: 19961101
  4. PROVERA [Suspect]
     Dosage: ORAL
     Route: 048
     Dates: start: 19760101, end: 19961101

REACTIONS (1)
  - BREAST CANCER FEMALE [None]
